FAERS Safety Report 20220903 (Version 2)
Quarter: 2022Q1

REPORT INFORMATION
  Report Type: Spontaneous
  Country: US (occurrence: US)
  Receive Date: 20211223
  Receipt Date: 20220104
  Transmission Date: 20220423
  Serious: No
  Sender: FDA-Public Use
  Company Number: US-GILEAD-2021-0562087

PATIENT
  Sex: Female

DRUGS (13)
  1. SOFOSBUVIR\VELPATASVIR [Suspect]
     Active Substance: SOFOSBUVIR\VELPATASVIR
     Indication: Chronic hepatitis C
     Dosage: 1 DOSAGE FORM, QD
     Route: 048
     Dates: start: 20211206
  2. XIFAXAN [Concomitant]
     Active Substance: RIFAXIMIN
  3. LACTULOSE [Concomitant]
     Active Substance: LACTULOSE
  4. ALPRAZOLAM [Concomitant]
     Active Substance: ALPRAZOLAM
  5. LOSARTAN POTASSIUM [Concomitant]
     Active Substance: LOSARTAN POTASSIUM
  6. TRADJENTA [Concomitant]
     Active Substance: LINAGLIPTIN
  7. PEPCID [Concomitant]
     Active Substance: FAMOTIDINE
  8. SEROQUEL [Concomitant]
     Active Substance: QUETIAPINE FUMARATE
  9. FLUOXETINE DR REDDYS [Concomitant]
  10. CYCLOBENZAPRINE HYDROCHLORIDE [Concomitant]
     Active Substance: CYCLOBENZAPRINE HYDROCHLORIDE
  11. ADMELOG [Concomitant]
     Active Substance: INSULIN LISPRO
  12. BASAGLAR KWIKPEN [Concomitant]
     Active Substance: INSULIN GLARGINE
  13. METHADONE HYDROCHLORIDE [Concomitant]
     Active Substance: METHADONE HYDROCHLORIDE

REACTIONS (2)
  - Headache [Recovered/Resolved with Sequelae]
  - Urinary tract infection [Unknown]
